FAERS Safety Report 8998974 (Version 2)
Quarter: 2013Q1

REPORT INFORMATION
  Report Type: Spontaneous
  Country: US (occurrence: US)
  Receive Date: 20130103
  Receipt Date: 20130205
  Transmission Date: 20140127
  Serious: No
  Sender: FDA-Public Use
  Company Number: US-PFIZER INC-2012332477

PATIENT
  Sex: Male

DRUGS (2)
  1. ZYVOX [Suspect]
     Dosage: 600 MG, 2X/DAY
     Route: 048
  2. CYMBALTA [Suspect]
     Dosage: 60 MG, 2X/DAY

REACTIONS (1)
  - No adverse event [Unknown]
